FAERS Safety Report 6954043-4 (Version None)
Quarter: 2010Q3

REPORT INFORMATION
  Report Type: 
  Country: None (occurrence: None)
  Receive Date: 20100829
  Receipt Date: 20100629
  Transmission Date: 20110219
  Serious: No
  Sender: FDA-Public Use
  Company Number: US-ABBOTT-10P-163-0655323-00

PATIENT
  Sex: Male
  Weight: 97.156 kg

DRUGS (7)
  1. NIASPAN [Suspect]
     Indication: HIGH DENSITY LIPOPROTEIN DECREASED
     Dosage: SAMPLES FROM MD OFFICE
     Route: 048
     Dates: start: 20100619
  2. METFORMIN [Concomitant]
     Indication: PRODUCT USED FOR UNKNOWN INDICATION
     Route: 048
  3. PLAVIX [Concomitant]
     Indication: PRODUCT USED FOR UNKNOWN INDICATION
     Dosage: TAKES THREE DAYS WEEKLY
     Route: 048
  4. PANTOPRAZOLE [Concomitant]
     Indication: PRODUCT USED FOR UNKNOWN INDICATION
     Route: 048
  5. CRESTOR [Concomitant]
     Indication: PRODUCT USED FOR UNKNOWN INDICATION
     Route: 048
  6. ASPIRIN [Concomitant]
     Indication: PRODUCT USED FOR UNKNOWN INDICATION
     Dosage: AT BEDTIME PRIOR TO NIASPAN
     Dates: start: 20100619, end: 20100626
  7. ASPIRIN [Concomitant]
     Dosage: AT BEDTIME PRIOR TO NIASPAN
     Route: 048
     Dates: start: 20100626

REACTIONS (3)
  - FLUSHING [None]
  - PRURITUS [None]
  - RASH [None]
